FAERS Safety Report 5136769-0 (Version None)
Quarter: 2006Q4

REPORT INFORMATION
  Report Type: 
  Country: None (occurrence: None)
  Receive Date: 20061023
  Receipt Date: 20061009
  Transmission Date: 20070319
  Serious: Yes (Death, Other)
  Sender: FDA-Public Use
  Company Number: 2005162361

PATIENT
  Age: 43 Year
  Sex: Female
  Weight: 91.9895 kg

DRUGS (21)
  1. NEURONTIN [Suspect]
     Indication: CONVULSION
     Dosage: 300 MG (300 MG, 1 IN 1 D), ORAL
     Route: 048
     Dates: start: 19980401
  2. NEURONTIN [Suspect]
     Indication: PAIN
     Dosage: 300 MG (300 MG, 1 IN 1 D), ORAL
     Route: 048
     Dates: start: 19980401
  3. NEURONTIN [Suspect]
     Indication: SYNCOPE
     Dosage: 300 MG (300 MG, 1 IN 1 D), ORAL
     Route: 048
     Dates: start: 19980401
  4. PROPOXYPHENE HCL [Suspect]
     Indication: PAIN
  5. BUTALBITAL [Suspect]
     Indication: HEADACHE
     Dates: start: 20000915
  6. STADOL [Concomitant]
  7. ZYPREXA [Concomitant]
  8. XANAX [Concomitant]
  9. TRAMADOL HCL [Concomitant]
  10. PIROXICAM [Concomitant]
  11. PROMETHEGAN (PROMETHAZINE HYDROCHLORIDE) [Concomitant]
  12. EFFEXOR [Concomitant]
  13. CELEBREX [Concomitant]
  14. ULTRAM [Concomitant]
  15. ALPRAZOLAM [Concomitant]
  16. NAPRONTAG FLEX (CARISOPRODOL, NAPROXEN) [Concomitant]
  17. AMBIEN [Concomitant]
  18. WELLBUTRIN [Concomitant]
  19. DOXEPIN HCL [Concomitant]
  20. NADOLOL [Concomitant]
  21. PHRENILIN (BUTALBITAL, PARACETAMOL) [Concomitant]

REACTIONS (6)
  - CARDIO-RESPIRATORY ARREST [None]
  - COMPLETED SUICIDE [None]
  - DRUG INEFFECTIVE [None]
  - MULTIPLE DRUG OVERDOSE INTENTIONAL [None]
  - STRESS [None]
  - SYNCOPE VASOVAGAL [None]
